FAERS Safety Report 23058207 (Version 1)
Quarter: 2023Q4

REPORT INFORMATION
  Report Type: Spontaneous
  Country: US (occurrence: None)
  Receive Date: 20231011
  Receipt Date: 20231011
  Transmission Date: 20240110
  Serious: No
  Sender: FDA-Public Use
  Company Number: None

PATIENT
  Age: 41 Year
  Sex: Female
  Weight: 63.9 kg

DRUGS (1)
  1. KIRKLAND SIGNATURE ALLERCLEAR [Suspect]
     Active Substance: LORATADINE

REACTIONS (6)
  - Withdrawal syndrome [None]
  - Dizziness [None]
  - Headache [None]
  - Nausea [None]
  - Pruritus [None]
  - Pruritus [None]
